FAERS Safety Report 17208155 (Version 1)
Quarter: 2019Q4

REPORT INFORMATION
  Report Type: Spontaneous
  Country: US (occurrence: US)
  Receive Date: 20191227
  Receipt Date: 20191227
  Transmission Date: 20200122
  Serious: Yes (Hospitalization)
  Sender: FDA-Public Use
  Company Number: US-UCBSA-2018032137

PATIENT
  Age: 46 Year
  Sex: Male

DRUGS (8)
  1. LACOSAMIDE. [Suspect]
     Active Substance: LACOSAMIDE
     Indication: STATUS EPILEPTICUS
     Dosage: 100 MG, 2X/DAY (BID)
  2. BRIVARACETAM [Concomitant]
     Active Substance: BRIVARACETAM
     Indication: STATUS EPILEPTICUS
     Dosage: 100 MG, 2X/DAY (BID)
  3. VIGABATRIN. [Concomitant]
     Active Substance: VIGABATRIN
     Indication: STATUS EPILEPTICUS
     Dosage: 1500 MG, 2X/DAY (BID)
  4. VALPROIC ACID. [Concomitant]
     Active Substance: VALPROIC ACID
     Indication: STATUS EPILEPTICUS
     Dosage: 500 MG, 2X/DAY (BID)
     Route: 042
  5. LACOSAMIDE. [Suspect]
     Active Substance: LACOSAMIDE
     Indication: OFF LABEL USE
  6. LEVETIRACETAM. [Suspect]
     Active Substance: LEVETIRACETAM
     Indication: STATUS EPILEPTICUS
     Dosage: 1500 MG, 2X/DAY (BID)
  7. TOPAMAX [Concomitant]
     Active Substance: TOPIRAMATE
     Indication: STATUS EPILEPTICUS
     Dosage: 200 MG, 2X/DAY (BID)
  8. LEVETIRACETAM. [Suspect]
     Active Substance: LEVETIRACETAM
     Indication: OFF LABEL USE
     Dosage: 500 MG, 2X/DAY (BID)

REACTIONS (2)
  - Off label use [Unknown]
  - Agitation [Recovered/Resolved]
